FAERS Safety Report 21394282 (Version 1)
Quarter: 2022Q3

REPORT INFORMATION
  Report Type: Spontaneous
  Country: FR (occurrence: FR)
  Receive Date: 20220930
  Receipt Date: 20220930
  Transmission Date: 20221027
  Serious: Yes (Hospitalization, Other)
  Sender: FDA-Public Use
  Company Number: None

PATIENT
  Age: 19 Year
  Sex: Male

DRUGS (4)
  1. PREGABALIN [Suspect]
     Active Substance: PREGABALIN
     Indication: Product used for unknown indication
     Dosage: UNSPECIFIED, THERAPY START DATE  : NASK ,  THERAPY END DATE : NASK
     Route: 065
  2. COCAINE [Suspect]
     Active Substance: COCAINE
     Indication: Product used for unknown indication
     Dosage: NOT SPECIFIED (SIGNIFICANT AND REGULAR CONSUMPTION),THERAPY START DATE  : NASK ,  THERAPY END DATE :
     Route: 065
  3. AMPHETAMINE [Suspect]
     Active Substance: AMPHETAMINE
     Indication: Product used for unknown indication
     Dosage: NOT SPECIFIED (SIGNIFICANT AND REGULAR CONSUMPTION), THERAPY START DATE  : NASK ,  THERAPY END DATE
     Route: 065
  4. CANNABIS SATIVA SUBSP. INDICA TOP [Suspect]
     Active Substance: CANNABIS SATIVA SUBSP. INDICA TOP
     Indication: Product used for unknown indication
     Dosage: NOT SPECIFIED (SIGNIFICANT AND REGULAR CONSUMPTION), THERAPY START DATE  : NASK ,  THERAPY END DATE
     Route: 065

REACTIONS (3)
  - Drug abuser [Recovering/Resolving]
  - Drug detoxification [Recovering/Resolving]
  - Intentional product misuse [Recovering/Resolving]

NARRATIVE: CASE EVENT DATE: 20220325
